FAERS Safety Report 13917557 (Version 1)
Quarter: 2017Q3

REPORT INFORMATION
  Report Type: Spontaneous
  Country: FR (occurrence: FR)
  Receive Date: 20170829
  Receipt Date: 20170829
  Transmission Date: 20171127
  Serious: Yes (Other)
  Sender: FDA-Public Use
  Company Number: PHHY2017FR123719

PATIENT
  Age: 75 Year
  Sex: Male

DRUGS (2)
  1. ENTRESTO [Suspect]
     Active Substance: SACUBITRIL\VALSARTAN
     Indication: CARDIAC FAILURE
     Dosage: 1 DF, EVERY 2 DAYS
     Route: 048
     Dates: start: 201606
  2. ENTRESTO [Suspect]
     Active Substance: SACUBITRIL\VALSARTAN
     Dosage: 100 MG (49/51), UNK
     Route: 048
     Dates: start: 201705

REACTIONS (3)
  - Ageusia [Not Recovered/Not Resolved]
  - Decreased appetite [Unknown]
  - Oral dysaesthesia [Unknown]

NARRATIVE: CASE EVENT DATE: 201606
